FAERS Safety Report 6890504-4 (Version None)
Quarter: 2010Q3

REPORT INFORMATION
  Report Type: 
  Country: None (occurrence: None)
  Receive Date: 20100731
  Receipt Date: 20081114
  Transmission Date: 20110219
  Serious: No
  Sender: FDA-Public Use
  Company Number: US-PFIZER INC-2008086246

PATIENT
  Sex: Male

DRUGS (4)
  1. LIPITOR [Suspect]
     Indication: BLOOD CHOLESTEROL
  2. CRESTOR [Suspect]
     Indication: BLOOD CHOLESTEROL
  3. CHOLESTEROL- AND TRIGLYCERIDE REDUCERS [Suspect]
     Indication: BLOOD CHOLESTEROL
  4. ZETIA [Suspect]
     Indication: BLOOD CHOLESTEROL
     Dates: start: 20080101

REACTIONS (4)
  - ARTHRALGIA [None]
  - BLOOD TRIGLYCERIDES INCREASED [None]
  - GAIT DISTURBANCE [None]
  - MYALGIA [None]
